FAERS Safety Report 4646425-0 (Version None)
Quarter: 2005Q2

REPORT INFORMATION
  Report Type: 
  Country: None (occurrence: None)
  Receive Date: 20050427
  Receipt Date: 20050105
  Transmission Date: 20051028
  Serious: No
  Sender: FDA-Public Use
  Company Number: US-GLAXOSMITHKLINE-A0539467A

PATIENT
  Sex: Female

DRUGS (4)
  1. SEREVENT [Suspect]
     Indication: ASTHMA
     Dosage: 1PUFF PER DAY
     Route: 055
  2. SEREVENT [Suspect]
     Dosage: 1PUFF PER DAY
     Route: 055
  3. SINGULAIR [Concomitant]
  4. VENTOLIN HFA [Concomitant]
     Route: 055

REACTIONS (2)
  - CHEST DISCOMFORT [None]
  - PALPITATIONS [None]
